FAERS Safety Report 17547158 (Version 3)
Quarter: 2020Q2

REPORT INFORMATION
  Report Type: Spontaneous
  Country: JP (occurrence: JP)
  Receive Date: 20200316
  Receipt Date: 20200407
  Transmission Date: 20200713
  Serious: Yes (Death, Hospitalization)
  Sender: FDA-Public Use
  Company Number: JP-INCYTE CORPORATION-2020IN002282

PATIENT

DRUGS (3)
  1. JAKAVI [Suspect]
     Active Substance: RUXOLITINIB
     Dosage: 10 MG
     Route: 048
     Dates: start: 20200311, end: 20200319
  2. JAKAVI [Suspect]
     Active Substance: RUXOLITINIB
     Indication: PRIMARY MYELOFIBROSIS
     Dosage: 5 MG, BID
     Route: 048
     Dates: start: 20200108, end: 20200226
  3. FEBURIC [Concomitant]
     Active Substance: FEBUXOSTAT
     Indication: HYPERURICAEMIA
     Dosage: 20 MG
     Route: 048
     Dates: start: 20190924, end: 20200226

REACTIONS (5)
  - Cardiac failure [Fatal]
  - Pneumonia [Fatal]
  - Anaemia [Unknown]
  - Platelet count decreased [Unknown]
  - Withdrawal syndrome [Fatal]

NARRATIVE: CASE EVENT DATE: 20200223
